FAERS Safety Report 14630262 (Version 1)
Quarter: 2018Q1

REPORT INFORMATION
  Report Type: Spontaneous
  Country: US (occurrence: US)
  Receive Date: 20180313
  Receipt Date: 20180313
  Transmission Date: 20180509
  Serious: Yes (Life-Threatening, Hospitalization)
  Sender: FDA-Public Use
  Company Number: None

PATIENT
  Age: 49 Year
  Sex: Female
  Weight: 56.25 kg

DRUGS (1)
  1. PIROXICAM. [Suspect]
     Active Substance: PIROXICAM
     Indication: BURSITIS
     Route: 048
     Dates: start: 19960601, end: 19960717

REACTIONS (4)
  - Impaired work ability [None]
  - Haematemesis [None]
  - Pain [None]
  - Gastric disorder [None]

NARRATIVE: CASE EVENT DATE: 19960717
